FAERS Safety Report 7838231-0 (Version None)
Quarter: 2011Q4

REPORT INFORMATION
  Report Type: 
  Country: None (occurrence: None)
  Receive Date: 20111024
  Receipt Date: 20111011
  Transmission Date: 20120403
  Serious: Yes (Death)
  Sender: FDA-Public Use
  Company Number: US-GILEAD-2011-0036661

PATIENT

DRUGS (3)
  1. ACETAMINOPHEN [Concomitant]
     Indication: BACK PAIN
     Dates: start: 20110105
  2. ACETAMINOPHEN [Concomitant]
     Indication: CHEST PAIN
  3. EMTRICITABINE/TENOFOVIR DISOPROXIL FUMARATE [Suspect]
     Dates: start: 20100203

REACTIONS (1)
  - PULMONARY EMBOLISM [None]
